FAERS Safety Report 21290310 (Version 1)
Quarter: 2022Q3

REPORT INFORMATION
  Report Type: Spontaneous
  Country: US (occurrence: US)
  Receive Date: 20220902
  Receipt Date: 20220902
  Transmission Date: 20221027
  Serious: No
  Sender: FDA-Public Use
  Company Number: US-BEH-2022149130

PATIENT
  Sex: Female

DRUGS (21)
  1. ZEMAIRA [Suspect]
     Active Substance: .ALPHA.1-PROTEINASE INHIBITOR HUMAN
     Indication: Cough
     Dosage: 60 MILLIGRAM/KILOGRAM, QW (928X4=3712) +/- 10 PERCENT
     Route: 042
  2. ZEMAIRA [Suspect]
     Active Substance: .ALPHA.1-PROTEINASE INHIBITOR HUMAN
     Dosage: UNK
     Route: 042
  3. FOSFOMYCIN [Concomitant]
     Active Substance: FOSFOMYCIN
  4. TROMETHAMINE [Concomitant]
     Active Substance: TROMETHAMINE
  5. LEVAQUIN [Concomitant]
     Active Substance: LEVOFLOXACIN
  6. DEXILANT [Concomitant]
     Active Substance: DEXLANSOPRAZOLE
  7. CHOLECALCIFEROL [Concomitant]
     Active Substance: CHOLECALCIFEROL
  8. FLUTICASONE PROPIONATE\SALMETEROL XINAFOATE [Concomitant]
     Active Substance: FLUTICASONE PROPIONATE\SALMETEROL XINAFOATE
  9. SPIRIVA [Concomitant]
     Active Substance: TIOTROPIUM BROMIDE MONOHYDRATE
  10. PROPRANOLOL [Concomitant]
     Active Substance: PROPRANOLOL HYDROCHLORIDE
  11. MECLIZINE HYDROCHLORIDE [Concomitant]
     Active Substance: MECLIZINE HYDROCHLORIDE
  12. SINGULAIR [Concomitant]
     Active Substance: MONTELUKAST SODIUM
  13. AMLODIPINE BESYLATE [Concomitant]
     Active Substance: AMLODIPINE BESYLATE
  14. ATORVASTATIN [Concomitant]
     Active Substance: ATORVASTATIN
  15. CARVEDILOL [Concomitant]
     Active Substance: CARVEDILOL
  16. INTRAROSA [Concomitant]
     Active Substance: PRASTERONE
  17. LOSARTAN POTASSIUM [Concomitant]
     Active Substance: LOSARTAN POTASSIUM
  18. MAXALT [Concomitant]
     Active Substance: RIZATRIPTAN BENZOATE
  19. NASACORT ALLERGO [Concomitant]
  20. OLOPATADINE [Concomitant]
     Active Substance: OLOPATADINE
  21. CHOLECALCIFEROL [Concomitant]
     Active Substance: CHOLECALCIFEROL

REACTIONS (6)
  - Urinary tract infection [Unknown]
  - Bursitis [Unknown]
  - Arthralgia [Unknown]
  - Pain in extremity [Unknown]
  - No adverse event [Unknown]
  - Off label use [Unknown]
